FAERS Safety Report 14593519 (Version 17)
Quarter: 2021Q1

REPORT INFORMATION
  Report Type: Report from Study
  Country: CA (occurrence: CA)
  Receive Date: 20180302
  Receipt Date: 20210302
  Transmission Date: 20210419
  Serious: Yes (Hospitalization, Other)
  Sender: FDA-Public Use
  Company Number: PHHY2017CA062948

PATIENT
  Sex: Male

DRUGS (10)
  1. AMLODIPINE [Concomitant]
     Active Substance: AMLODIPINE BESYLATE
     Indication: HYPERTENSION
     Dosage: 2.5 MG
     Route: 065
     Dates: start: 2016
  2. SANDOSTATIN LAR DEPOT [Suspect]
     Active Substance: OCTREOTIDE ACETATE
     Indication: PANCREATIC NEUROENDOCRINE TUMOUR METASTATIC
     Dosage: 30 MG, Q4W
     Route: 030
     Dates: start: 20141110
  3. AMLODIPINE [Concomitant]
     Active Substance: AMLODIPINE BESYLATE
     Dosage: UNK
     Route: 065
  4. SANDOSTATIN LAR DEPOT [Suspect]
     Active Substance: OCTREOTIDE ACETATE
  5. AFINITOR [Concomitant]
     Active Substance: EVEROLIMUS
     Dosage: 10 MG, QD
     Route: 048
     Dates: end: 201908
  6. AMLODIPINE [Concomitant]
     Active Substance: AMLODIPINE BESYLATE
     Dosage: 0.5 DF, QD
     Route: 065
     Dates: start: 20161214
  7. SANDOSTATIN LAR DEPOT [Suspect]
     Active Substance: OCTREOTIDE ACETATE
  8. AFINITOR [Concomitant]
     Active Substance: EVEROLIMUS
     Dosage: UNK
     Route: 065
     Dates: start: 2017
  9. AMLODIPINE [Concomitant]
     Active Substance: AMLODIPINE BESYLATE
     Dosage: 1 DF, QD
     Route: 065
     Dates: start: 201703
  10. AFINITOR [Concomitant]
     Active Substance: EVEROLIMUS
     Indication: PANCREATIC NEUROENDOCRINE TUMOUR
     Dosage: 5 MG, QD
     Route: 048
     Dates: start: 20170314

REACTIONS (14)
  - Cough [Unknown]
  - Pulmonary mass [Unknown]
  - Sepsis [Unknown]
  - Blood pressure increased [Recovering/Resolving]
  - Pancreatic neuroendocrine tumour metastatic [Recovering/Resolving]
  - Body temperature fluctuation [Unknown]
  - Decreased appetite [Unknown]
  - Malignant neoplasm progression [Recovering/Resolving]
  - Productive cough [Unknown]
  - Malaise [Unknown]
  - Heart rate increased [Unknown]
  - Pyrexia [Unknown]
  - Chills [Unknown]
  - Asthenia [Unknown]

NARRATIVE: CASE EVENT DATE: 2019
